FAERS Safety Report 22384373 (Version 1)
Quarter: 2023Q2

REPORT INFORMATION
  Report Type: Spontaneous
  Country: ES (occurrence: ES)
  Receive Date: 20230530
  Receipt Date: 20230530
  Transmission Date: 20230722
  Serious: Yes (Other)
  Sender: FDA-Public Use
  Company Number: ES-MYLANLABS-2023M1055242

PATIENT
  Age: 50 Year
  Sex: Male

DRUGS (8)
  1. SILDENAFIL [Suspect]
     Active Substance: SILDENAFIL
     Indication: Erectile dysfunction
     Dosage: UNK, INITIALLY, HE WAS TAKING RECOMMENDED DOSES.
     Route: 048
  2. SILDENAFIL [Suspect]
     Active Substance: SILDENAFIL
     Dosage: UNK,OVER THE PAST FEW YEARS, HE INCREASED THE DOSES
     Route: 065
  3. SILDENAFIL [Suspect]
     Active Substance: SILDENAFIL
     Dosage: 800 MILLIGRAM, QD
     Route: 048
  4. TADALAFIL [Suspect]
     Active Substance: TADALAFIL
     Indication: Erectile dysfunction
     Dosage: INITIALLY, HE WAS TAKING RECOMMENDED DOSES
     Route: 048
  5. TADALAFIL [Suspect]
     Active Substance: TADALAFIL
     Dosage: UNK,OVER THE PAST FEW YEARS, HE INCREASED THE DOSES
     Route: 065
  6. VARDENAFIL HYDROCHLORIDE [Suspect]
     Active Substance: VARDENAFIL HYDROCHLORIDE
     Indication: Erectile dysfunction
     Dosage: UNK, INITIALLY, HE WAS TAKING RECOMMENDED DOSES.
     Route: 065
  7. VARDENAFIL HYDROCHLORIDE [Suspect]
     Active Substance: VARDENAFIL HYDROCHLORIDE
     Dosage: UNK,OVER THE PAST FEW YEARS, HE INCREASED THE DOSES
     Route: 065
  8. VARDENAFIL HYDROCHLORIDE [Suspect]
     Active Substance: VARDENAFIL HYDROCHLORIDE
     Dosage: 600 MILLIGRAM, QD
     Route: 048

REACTIONS (4)
  - Retinal disorder [Recovered/Resolved]
  - Visual impairment [Recovered/Resolved]
  - Intentional overdose [Recovered/Resolved]
  - Intentional product misuse [Recovered/Resolved]
